FAERS Safety Report 8224699-7 (Version None)
Quarter: 2012Q1

REPORT INFORMATION
  Report Type: 
  Country: None (occurrence: None)
  Receive Date: 20120321
  Receipt Date: 20120305
  Transmission Date: 20120608
  Serious: No
  Sender: FDA-Public Use
  Company Number: US-B.I. PHARMACEUTICALS,INC./RIDGEFIELD-2012-BP-02742BP

PATIENT
  Sex: Female

DRUGS (2)
  1. PROAIR HFA [Concomitant]
     Indication: CHRONIC OBSTRUCTIVE PULMONARY DISEASE
     Route: 055
     Dates: start: 20120201
  2. SPIRIVA [Suspect]
     Indication: CHRONIC OBSTRUCTIVE PULMONARY DISEASE
     Dosage: 18 MCG
     Route: 055
     Dates: start: 20120101

REACTIONS (5)
  - DRY MOUTH [None]
  - GLOSSODYNIA [None]
  - INCREASED UPPER AIRWAY SECRETION [None]
  - DYSPHONIA [None]
  - CHEST PAIN [None]
